FAERS Safety Report 14212410 (Version 2)
Quarter: 2017Q4

REPORT INFORMATION
  Report Type: Report from Study
  Country: US (occurrence: US)
  Receive Date: 20171121
  Receipt Date: 20171127
  Transmission Date: 20180321
  Serious: Yes (Death)
  Sender: FDA-Public Use
  Company Number: US-BEH-2017085091

PATIENT
  Age: 42 Year
  Sex: Male
  Weight: 65.31 kg

DRUGS (19)
  1. ZEMAIRA [Suspect]
     Active Substance: .ALPHA.1-PROTEINASE INHIBITOR HUMAN
     Dosage: UNK
     Route: 042
  2. CELEXA [Concomitant]
     Active Substance: CITALOPRAM HYDROBROMIDE
  3. LYRICA [Concomitant]
     Active Substance: PREGABALIN
  4. SIMVASTATIN. [Concomitant]
     Active Substance: SIMVASTATIN
  5. UMECLIDINIUM [Concomitant]
     Active Substance: UMECLIDINIUM BROMIDE
  6. SINGULAIR [Concomitant]
     Active Substance: MONTELUKAST SODIUM
  7. FLEXERIL [Concomitant]
     Active Substance: CYCLOBENZAPRINE HYDROCHLORIDE
  8. CHANTIX [Concomitant]
     Active Substance: VARENICLINE TARTRATE
  9. OXYCODONE [Concomitant]
     Active Substance: OXYCODONE
  10. ZEMAIRA [Suspect]
     Active Substance: .ALPHA.1-PROTEINASE INHIBITOR HUMAN
     Indication: CHRONIC OBSTRUCTIVE PULMONARY DISEASE
     Dosage: 60 MG/KG, UNK
     Route: 042
     Dates: start: 20110309
  11. PREDNISONE. [Concomitant]
     Active Substance: PREDNISONE
  12. LEVAQUIN [Concomitant]
     Active Substance: LEVOFLOXACIN
  13. SPIRIVA [Concomitant]
     Active Substance: TIOTROPIUM BROMIDE MONOHYDRATE
  14. ZEMAIRA [Suspect]
     Active Substance: .ALPHA.1-PROTEINASE INHIBITOR HUMAN
     Indication: ALPHA-1 ANTI-TRYPSIN DEFICIENCY
     Dosage: 4 DF, QW
     Route: 042
     Dates: start: 20100901
  15. DOXYCYCLINE. [Concomitant]
     Active Substance: DOXYCYCLINE
  16. OXYGEN. [Concomitant]
     Active Substance: OXYGEN
  17. ADVAIR HFA [Concomitant]
     Active Substance: FLUTICASONE PROPIONATE\SALMETEROL XINAFOATE
  18. ALBUTEROL                          /00139501/ [Concomitant]
     Active Substance: ALBUTEROL
  19. LISINOPRIL. [Concomitant]
     Active Substance: LISINOPRIL

REACTIONS (1)
  - Death [Fatal]

NARRATIVE: CASE EVENT DATE: 20171109
